FAERS Safety Report 4615513-7 (Version None)
Quarter: 2005Q1

REPORT INFORMATION
  Report Type: 
  Country: None (occurrence: None)
  Receive Date: 20050317
  Receipt Date: 20050308
  Transmission Date: 20050727
  Serious: Yes (Other)
  Sender: FDA-Public Use
  Company Number: 2005-BP-03659RO

PATIENT
  Age: 24 Year
  Sex: Female

DRUGS (5)
  1. DEXAMETHASONE [Suspect]
     Indication: DEXAMETHASONE SUPPRESSION TEST
  2. CARBAMAZEPINE [Suspect]
     Indication: EPILEPSY
     Dosage: 400 MG TID (400 MG, 3 IN 1 D), PO
     Route: 048
  3. ALPRAZOLAM [Concomitant]
  4. SERTRALINE HCL [Concomitant]
  5. PROPRANOLOL [Concomitant]

REACTIONS (3)
  - BLOOD CORTISOL DECREASED [None]
  - DEXAMETHASONE SUPPRESSION TEST POSITIVE [None]
  - DRUG INTERACTION [None]
